FAERS Safety Report 7860782-3 (Version None)
Quarter: 2011Q4

REPORT INFORMATION
  Report Type: 
  Country: None (occurrence: None)
  Receive Date: 20111027
  Receipt Date: 20111013
  Transmission Date: 20120403
  Serious: Yes (Other)
  Sender: FDA-Public Use
  Company Number: GB-EISAI INC-E7389-01583-SPO-GB

PATIENT
  Sex: Female

DRUGS (2)
  1. METHOTREXATE [Concomitant]
     Route: 037
     Dates: start: 20110923
  2. HALAVEN [Suspect]
     Dosage: UNKNOWN
     Route: 042
     Dates: start: 20110803

REACTIONS (3)
  - HIP FRACTURE [None]
  - FALL [None]
  - NEUROPATHY PERIPHERAL [None]
